FAERS Safety Report 20129103 (Version 1)
Quarter: 2021Q4

REPORT INFORMATION
  Report Type: Spontaneous
  Country: FR (occurrence: FR)
  Receive Date: 20211130
  Receipt Date: 20211130
  Transmission Date: 20220304
  Serious: Yes (Life-Threatening, Other)
  Sender: FDA-Public Use
  Company Number: FR-AFSSAPS-AM20200914

PATIENT
  Age: 72 Year
  Sex: Female
  Weight: 115 kg

DRUGS (10)
  1. EPHEDRINE [Suspect]
     Active Substance: EPHEDRINE
     Indication: Prophylaxis
     Dosage: 9 MILLIGRAM (1 TOTAL)
     Route: 042
     Dates: start: 20200727, end: 20200727
  2. ATROPINE SULFATE [Suspect]
     Active Substance: ATROPINE SULFATE
     Indication: Prophylaxis
     Dosage: 0.75 MILLIGRAM
     Route: 042
     Dates: start: 20200727, end: 20200727
  3. PATENT BLUE V [Suspect]
     Active Substance: PATENT BLUE V
     Indication: Lymphatic mapping
     Dosage: 2 MILLILITER (1 TOTAL)
     Route: 058
     Dates: start: 20200727, end: 20200727
  4. CEFAZOLIN SODIUM [Suspect]
     Active Substance: CEFAZOLIN SODIUM
     Indication: Prophylaxis
     Dosage: 4 GRAM (1 TOTAL)
     Route: 042
     Dates: start: 20200727, end: 20200727
  5. DROPERIDOL [Suspect]
     Active Substance: DROPERIDOL
     Indication: Anaesthesia
     Dosage: 1.25 MILLIGRAM (1 TOTAL)
     Route: 042
     Dates: start: 20200727, end: 20200727
  6. DEXAMETHASONE [Suspect]
     Active Substance: DEXAMETHASONE
     Indication: Prophylaxis
     Dosage: 8 MILLIGRAM (TOTAL)
     Route: 042
     Dates: start: 20200727, end: 20200727
  7. REMIFENTANIL [Suspect]
     Active Substance: REMIFENTANIL
     Indication: Anaesthesia
     Dosage: 15 MICROGRAM (1 TOTAL)
     Route: 042
     Dates: start: 20200727, end: 20200727
  8. PROPOFOL LIPURO [Suspect]
     Active Substance: PROPOFOL
     Indication: Anaesthesia
     Dosage: 200 MILLIGRAM (1 TOTAL)
     Route: 042
     Dates: start: 20200727, end: 20200727
  9. ROCURONIUM [Suspect]
     Active Substance: ROCURONIUM BROMIDE
     Indication: Anaesthesia
     Dosage: 100 MILLIGRAM (1 TOTAL)
     Route: 042
     Dates: start: 20200727, end: 20200727
  10. LIDOCAINE HYDROCHLORIDE [Suspect]
     Active Substance: LIDOCAINE HYDROCHLORIDE
     Indication: Prophylaxis
     Dosage: UNK
     Route: 041
     Dates: start: 20200727, end: 20200727

REACTIONS (1)
  - Anaphylactic shock [Recovered/Resolved]

NARRATIVE: CASE EVENT DATE: 20200727
